FAERS Safety Report 8388305-3 (Version None)
Quarter: 2012Q2

REPORT INFORMATION
  Report Type: 
  Country: None (occurrence: None)
  Receive Date: 20120525
  Receipt Date: 20120514
  Transmission Date: 20120825
  Serious: Yes (Disabling, Other)
  Sender: FDA-Public Use
  Company Number: GB-ASTRAZENECA-2012SE29148

PATIENT
  Age: 54 Year
  Sex: Male
  Weight: 54.9 kg

DRUGS (4)
  1. CANDESARTAN CILEXETIL [Suspect]
     Route: 048
     Dates: start: 20101102, end: 20120420
  2. CANDESARTAN CILEXETIL [Suspect]
     Route: 048
     Dates: start: 20101102
  3. AMLODIPINE BESYLATE [Concomitant]
     Indication: HYPERTENSION
  4. CANDESARTAN CILEXETIL [Suspect]
     Route: 048
     Dates: start: 20101102

REACTIONS (5)
  - GAIT DISTURBANCE [None]
  - INSOMNIA [None]
  - PAIN IN EXTREMITY [None]
  - BACK PAIN [None]
  - PARAESTHESIA [None]
